FAERS Safety Report 12041107 (Version 9)
Quarter: 2021Q1

REPORT INFORMATION
  Report Type: Spontaneous
  Country: US (occurrence: US)
  Receive Date: 20160208
  Receipt Date: 20210202
  Transmission Date: 20210419
  Serious: No
  Sender: FDA-Public Use
  Company Number: US-PFIZER INC-2016070934

PATIENT
  Age: 55 Year
  Sex: Female

DRUGS (12)
  1. LYRICA [Suspect]
     Active Substance: PREGABALIN
     Indication: MYALGIA
     Dosage: 200 MG, 1X/DAY [ONCE DAILY]
     Route: 048
  2. ARISTOCORT [Concomitant]
     Active Substance: TRIAMCINOLONE DIACETATE
     Dosage: UNK, 2X/DAY (BOTH ELBOWS FOR NO LONGER THAN 2 WEEKS)
     Route: 061
  3. ULTRAM [Concomitant]
     Active Substance: TRAMADOL HYDROCHLORIDE
     Indication: PAIN
     Dosage: 50 MG, AS NEEDED (1 TAB BY MOUTH EVERY 6 HOURS)
     Route: 048
  4. ANTIVERT [Concomitant]
     Active Substance: MECLIZINE HYDROCHLORIDE
     Indication: DIZZINESS
     Dosage: 25 MG, AS NEEDED (1 TAB BY MOUTH 3 TIMES A DAY )
     Route: 048
  5. LYRICA [Suspect]
     Active Substance: PREGABALIN
     Indication: SPINAL PAIN
     Dosage: 100 MG, 3X/DAY
     Route: 048
     Dates: start: 2010
  6. AMITRIPTYLINE [Concomitant]
     Active Substance: AMITRIPTYLINE
     Indication: PAIN
     Dosage: 1 DF, 1X/DAY (BEDTIME)
  7. DOXYCYCLINE HYCLATE. [Concomitant]
     Active Substance: DOXYCYCLINE HYCLATE
     Dosage: 100 MG, 2X/DAY (TAKE FOR 7 DAYS)
     Route: 048
  8. LYRICA [Suspect]
     Active Substance: PREGABALIN
     Indication: MYOSITIS
     Dosage: 200 MG, 3X/DAY
     Route: 048
  9. LYRICA [Suspect]
     Active Substance: PREGABALIN
     Indication: NEURALGIA
  10. AMITRIPTYLINE [Concomitant]
     Active Substance: AMITRIPTYLINE
     Dosage: 25 MG, DAILY
  11. LYRICA [Suspect]
     Active Substance: PREGABALIN
     Indication: PAIN
  12. OMEPRAZOLE. [Concomitant]
     Active Substance: OMEPRAZOLE
     Indication: GASTROOESOPHAGEAL REFLUX DISEASE
     Dosage: 10 MG, UNK

REACTIONS (4)
  - Withdrawal syndrome [Unknown]
  - Night sweats [Unknown]
  - Gastric disorder [Unknown]
  - Chills [Unknown]
